FAERS Safety Report 19745950 (Version 1)
Quarter: 2021Q3

REPORT INFORMATION
  Report Type: Spontaneous
  Country: AR (occurrence: AR)
  Receive Date: 20210825
  Receipt Date: 20210825
  Transmission Date: 20211014
  Serious: Yes (Death)
  Sender: FDA-Public Use
  Company Number: AR-ROCHE-2893918

PATIENT
  Age: 78 Year
  Sex: Female

DRUGS (12)
  1. PERTUZUMAB. [Suspect]
     Active Substance: PERTUZUMAB
     Indication: HEPATITIS B
     Route: 065
  2. TRASTUZUMAB EMTANSINE [Suspect]
     Active Substance: ADO-TRASTUZUMAB EMTANSINE
     Indication: HEPATITIS B
     Route: 065
  3. GEMCITABINE. [Concomitant]
     Active Substance: GEMCITABINE
     Indication: HEPATITIS B
  4. CAPECITABINE. [Suspect]
     Active Substance: CAPECITABINE
     Indication: BILIARY NEOPLASM
  5. TRASTUZUMAB. [Suspect]
     Active Substance: TRASTUZUMAB
     Indication: BILIARY NEOPLASM
  6. GEMCITABINE. [Concomitant]
     Active Substance: GEMCITABINE
     Indication: BILIARY NEOPLASM
  7. CAPECITABINE. [Suspect]
     Active Substance: CAPECITABINE
     Indication: HEPATITIS B
     Route: 048
  8. TRASTUZUMAB. [Suspect]
     Active Substance: TRASTUZUMAB
     Indication: HEPATITIS B
     Route: 065
  9. TRASTUZUMAB EMTANSINE [Suspect]
     Active Substance: ADO-TRASTUZUMAB EMTANSINE
     Indication: BILIARY NEOPLASM
  10. CISPLATIN. [Concomitant]
     Active Substance: CISPLATIN
     Indication: BILIARY NEOPLASM
  11. PERTUZUMAB. [Suspect]
     Active Substance: PERTUZUMAB
     Indication: BILIARY NEOPLASM
  12. CISPLATIN. [Concomitant]
     Active Substance: CISPLATIN
     Indication: HEPATITIS B

REACTIONS (2)
  - Disease recurrence [Unknown]
  - Death [Fatal]
